FAERS Safety Report 23037736 (Version 1)
Quarter: 2023Q4

REPORT INFORMATION
  Report Type: Spontaneous
  Country: NL (occurrence: NL)
  Receive Date: 20231006
  Receipt Date: 20231006
  Transmission Date: 20240110
  Serious: Yes (Hospitalization)
  Sender: FDA-Public Use
  Company Number: None

PATIENT
  Age: 77 Year
  Sex: Male
  Weight: 66 kg

DRUGS (5)
  1. TIOTROPIUM BROMIDE [Suspect]
     Active Substance: TIOTROPIUM BROMIDE
     Indication: Asthma
     Dosage: 1 X PER DAG 2 INHALATIES
     Dates: start: 20000101
  2. ALBUTEROL [Suspect]
     Active Substance: ALBUTEROL
     Indication: Asthma
     Dosage: ZO NODIG 2 X PER DAG 1 DOSIS
     Dates: start: 20000101
  3. SODIUM POLYSTYRENE SULFONATE [Suspect]
     Active Substance: SODIUM POLYSTYRENE SULFONATE
     Indication: Hyperkalaemia
     Dosage: 3XPW 3D15G
     Dates: start: 20230818, end: 20230904
  4. BUMETANIDE [Suspect]
     Active Substance: BUMETANIDE
     Indication: Oedema
     Dosage: 2D1MG
     Dates: start: 20230715, end: 20230904
  5. NATRIUMWATERSTOFCARBONAAT / Brand name not specified [Concomitant]
     Indication: Product used for unknown indication

REACTIONS (2)
  - Metabolic alkalosis [Recovered/Resolved]
  - Hypokalaemia [Recovered/Resolved]
